FAERS Safety Report 25172596 (Version 1)
Quarter: 2025Q2

REPORT INFORMATION
  Report Type: Spontaneous
  Country: SI (occurrence: SI)
  Receive Date: 20250408
  Receipt Date: 20250408
  Transmission Date: 20250716
  Serious: No
  Sender: OCTAPHARMA
  Company Number: None

PATIENT
  Age: 64 Year
  Sex: Female

DRUGS (8)
  1. PANZYGA [Suspect]
     Active Substance: HUMAN IMMUNOGLOBULIN G
     Indication: Mantle cell lymphoma
     Route: 042
     Dates: start: 20250317, end: 20250317
  2. Folna kislina vitabalans [Concomitant]
  3. Eltroxin 50 MICROGRAM [Concomitant]
  4. Nebilet 5 MG [Concomitant]
  5. AVELOX [Concomitant]
     Active Substance: MOXIFLOXACIN HYDROCHLORIDE
  6. Betrion 20 MG/G [Concomitant]
  7. AFLODERM 0,5 MG/G [Concomitant]
  8. RITUXIMAB [Concomitant]
     Active Substance: RITUXIMAB
     Indication: Chemotherapy

REACTIONS (1)
  - Infusion related reaction [Recovered/Resolved]

NARRATIVE: CASE EVENT DATE: 20250317
